FAERS Safety Report 18590107 (Version 1)
Quarter: 2020Q4

REPORT INFORMATION
  Report Type: Spontaneous
  Country: US (occurrence: US)
  Receive Date: 20201207
  Receipt Date: 20201207
  Transmission Date: 20210114
  Serious: Yes (Hospitalization)
  Sender: FDA-Public Use
  Company Number: None

PATIENT
  Sex: Female

DRUGS (13)
  1. ASPIRIN. [Concomitant]
     Active Substance: ASPIRIN
  2. ATORVATATIN [Concomitant]
  3. GLIPIZIDE. [Concomitant]
     Active Substance: GLIPIZIDE
  4. LISINOPRIL. [Concomitant]
     Active Substance: LISINOPRIL
  5. MONTELUKAST [Concomitant]
     Active Substance: MONTELUKAST SODIUM
  6. ZYRTEC ALLGY [Concomitant]
  7. LASIX [Concomitant]
     Active Substance: FUROSEMIDE
  8. HUMULIN R [Concomitant]
     Active Substance: INSULIN HUMAN
  9. HYDROCODOME BITARTA [Concomitant]
  10. ESBRIET [Suspect]
     Active Substance: PIRFENIDONE
     Indication: IDIOPATHIC PULMONARY FIBROSIS
     Route: 048
     Dates: start: 20190808
  11. CALCIUM [Concomitant]
     Active Substance: CALCIUM
  12. METFORMIN [Concomitant]
     Active Substance: METFORMIN HYDROCHLORIDE
  13. MULTIPLE VIT [Concomitant]

REACTIONS (2)
  - Pulmonary hypertension [None]
  - Therapy interrupted [None]
